FAERS Safety Report 17363004 (Version 2)
Quarter: 2020Q1

REPORT INFORMATION
  Report Type: Spontaneous
  Country: DE (occurrence: DE)
  Receive Date: 20200203
  Receipt Date: 20200207
  Transmission Date: 20200409
  Serious: Yes (Hospitalization)
  Sender: FDA-Public Use
  Company Number: DE-MYLANLABS-2020M1011498

PATIENT
  Age: 52 Year
  Sex: Male

DRUGS (4)
  1. CEFPODOXIME [Concomitant]
     Active Substance: CEFPODOXIME
     Dosage: 200 MILLIGRAM (0-0-0, TABLETTEN)
     Route: 048
  2. METRONIDAZOL                       /00012501/ [Concomitant]
     Active Substance: METRONIDAZOLE
     Dosage: 400 MILLIGRAM (0-0-0, TABLETTEN)
     Route: 048
  3. AZATHIOPRINE. [Suspect]
     Active Substance: AZATHIOPRINE
     Indication: PRODUCT USED FOR UNKNOWN INDICATION
     Dosage: 50 MILLIGRAM (50 MG, 0-0-0, TABLETTEN)
     Route: 048
  4. PREDNISON [Concomitant]
     Active Substance: PREDNISONE
     Dosage: 25 MILLIGRAM (1-0-0, TABLETTEN)
     Route: 048

REACTIONS (3)
  - Systemic infection [Unknown]
  - Pyrexia [Unknown]
  - General physical health deterioration [Unknown]
